FAERS Safety Report 8160304-6 (Version None)
Quarter: 2012Q1

REPORT INFORMATION
  Report Type: 
  Country: None (occurrence: None)
  Receive Date: 20120223
  Receipt Date: 20120223
  Transmission Date: 20120608
  Serious: No
  Sender: FDA-Public Use
  Company Number: None

PATIENT
  Age: 32 Year
  Sex: Female
  Weight: 68.038 kg

DRUGS (1)
  1. CLARITIN [Suspect]
     Indication: MULTIPLE ALLERGIES
     Dosage: 1 TABLET
     Route: 048
     Dates: start: 20120222, end: 20120222

REACTIONS (2)
  - ANXIETY [None]
  - DEPRESSION [None]
